FAERS Safety Report 10243333 (Version 1)
Quarter: 2014Q2

REPORT INFORMATION
  Report Type: Spontaneous
  Country: US (occurrence: None)
  Receive Date: 20140616
  Receipt Date: 20140616
  Transmission Date: 20141212
  Serious: Yes (Hospitalization)
  Sender: FDA-Public Use
  Company Number: 001746799A

PATIENT
  Age: 54 Year
  Sex: Female

DRUGS (2)
  1. MB* ANTIOXIDANT DAY CREME SPF 20 [Suspect]
     Dosage: DERMAL
     Dates: start: 20140423, end: 20140425
  2. MB* SKIN BRIGHTENING DECOLLETE+NECK TREATMENT SPF 15 [Suspect]
     Dosage: DERMAL
     Dates: start: 20140423, end: 20140425

REACTIONS (5)
  - Migraine [None]
  - Hypersensitivity [None]
  - Rash [None]
  - Rash [None]
  - Rash [None]
